FAERS Safety Report 21971292 (Version 1)
Quarter: 2023Q1

REPORT INFORMATION
  Report Type: Spontaneous
  Country: CH (occurrence: CH)
  Receive Date: 20230209
  Receipt Date: 20230209
  Transmission Date: 20230418
  Serious: Yes (Other)
  Sender: FDA-Public Use
  Company Number: None

PATIENT
  Age: 88 Year
  Sex: Male

DRUGS (21)
  1. ENOXAPARIN SODIUM [Suspect]
     Active Substance: ENOXAPARIN SODIUM
     Dosage: 40 MG QD
     Dates: start: 20230110
  2. AMLODIPINE [Suspect]
     Active Substance: AMLODIPINE BESYLATE
     Dosage: 10 MG QD
     Dates: start: 20230111
  3. TORSEMIDE [Suspect]
     Active Substance: TORSEMIDE
     Dosage: 5 MG QD
     Dates: start: 20230111
  4. TRAMADOL [Suspect]
     Active Substance: TRAMADOL
     Dosage: 50 MG BID
     Dates: start: 20230117
  5. LEVETIRACETAM [Suspect]
     Active Substance: LEVETIRACETAM
     Dosage: 500 MG BID
     Dates: start: 20230116
  6. CALCIUM\CHOLECALCIFEROL [Suspect]
     Active Substance: CALCIUM\CHOLECALCIFEROL
     Dosage: 1300 MG, QD
     Dates: start: 20230112
  7. LISINOPRIL [Concomitant]
     Active Substance: LISINOPRIL
  8. VIFEROL [Concomitant]
     Dosage: UNK
     Dates: start: 20230112
  9. THIAMINE HYDROCHLORIDE [Concomitant]
     Active Substance: THIAMINE HYDROCHLORIDE
     Dosage: STARTED IN THE MORNING
     Dates: start: 20230120
  10. VITAMIN B12 [Concomitant]
     Active Substance: CYANOCOBALAMIN
     Dosage: UNK
     Dates: start: 20230113
  11. FOLIC ACID [Concomitant]
     Active Substance: FOLIC ACID
     Dosage: UNK
     Dates: start: 20230113
  12. FIG FRUIT OIL\SORBITOL [Concomitant]
     Active Substance: FIG FRUIT OIL\SORBITOL
     Dosage: UNK
     Dates: start: 20230113
  13. SODIUM PICOSULFATE [Concomitant]
     Active Substance: SODIUM PICOSULFATE
     Dosage: UNK
     Dates: start: 20230114, end: 20230114
  14. SODIUM PICOSULFATE [Concomitant]
     Active Substance: SODIUM PICOSULFATE
     Dosage: UNK
     Dates: start: 20230121, end: 20230121
  15. OXAZEPAM [Concomitant]
     Active Substance: OXAZEPAM
     Dosage: UNK
     Dates: start: 20230114, end: 20230114
  16. OXAZEPAM [Concomitant]
     Active Substance: OXAZEPAM
     Dosage: UNK
     Dates: start: 20230111, end: 20230111
  17. OXAZEPAM [Concomitant]
     Active Substance: OXAZEPAM
     Dosage: UNK
     Dates: start: 20230115, end: 20230115
  18. CARVEDILOL [Concomitant]
     Active Substance: CARVEDILOL
     Dates: end: 20230110
  19. NIFEDIPINE [Concomitant]
     Active Substance: NIFEDIPINE
     Dates: start: 20230114, end: 20230115
  20. POTASSIUM CITRATE [Concomitant]
     Active Substance: POTASSIUM CITRATE
     Dates: start: 20230110, end: 20230110
  21. POTASSIUM CHLORIDE [Concomitant]
     Active Substance: POTASSIUM CHLORIDE
     Dates: start: 20230111, end: 20230111

REACTIONS (1)
  - Rash maculo-papular [Not Recovered/Not Resolved]

NARRATIVE: CASE EVENT DATE: 20230120
